FAERS Safety Report 13856347 (Version 2)
Quarter: 2017Q4

REPORT INFORMATION
  Report Type: Other
  Country: GB (occurrence: GB)
  Receive Date: 20170810
  Receipt Date: 20171017
  Transmission Date: 20180320
  Serious: Yes (Death)
  Sender: FDA-Public Use
  Company Number: GB-HERITAGE PHARMACEUTICALS-2017HTG00209

PATIENT
  Age: 19 Year
  Sex: Female
  Weight: 63.5 kg

DRUGS (1)
  1. VERAPAMIL HYDROCHLORIDE. [Suspect]
     Active Substance: VERAPAMIL HYDROCHLORIDE
     Dosage: UNK MG, UNK
     Dates: end: 201610

REACTIONS (8)
  - Loss of consciousness [Fatal]
  - Cardiac arrest [Fatal]
  - Cough [Unknown]
  - Overdose [Fatal]
  - Vomiting [Unknown]
  - Prescription drug used without a prescription [Unknown]
  - Seizure [Fatal]
  - Discoloured vomit [Unknown]

NARRATIVE: CASE EVENT DATE: 201610
